FAERS Safety Report 4962653-9 (Version None)
Quarter: 2006Q1

REPORT INFORMATION
  Report Type: 
  Country: None (occurrence: None)
  Receive Date: 20060201
  Receipt Date: 20051014
  Transmission Date: 20060701
  Serious: No
  Sender: FDA-Public Use
  Company Number: 2005PV004046

PATIENT
  Age: 54 Year
  Sex: Female
  Weight: 92.5338 kg

DRUGS (5)
  1. BYETTA [Suspect]
     Indication: DIABETES MELLITUS NON-INSULIN-DEPENDENT
     Dosage: 5 MCG;BID;SC
     Route: 058
     Dates: start: 20050912
  2. GLUCOTROL XL [Concomitant]
  3. GLUCOPHAGE [Concomitant]
  4. DIOVAN HCT [Concomitant]
  5. GLUCOTROL XL [Concomitant]

REACTIONS (5)
  - BLOOD GLUCOSE DECREASED [None]
  - HYPERHIDROSIS [None]
  - INCREASED APPETITE [None]
  - TREMOR [None]
  - WEIGHT INCREASED [None]
